FAERS Safety Report 8529845-3 (Version None)
Quarter: 2012Q3

REPORT INFORMATION
  Report Type: 
  Country: None (occurrence: None)
  Receive Date: 20120723
  Receipt Date: 20120713
  Transmission Date: 20120928
  Serious: Yes (Other)
  Sender: FDA-Public Use
  Company Number: IT-JNJFOC-20120707050

PATIENT
  Age: 38 Year
  Sex: Male
  Weight: 80 kg

DRUGS (7)
  1. LANTANON [Suspect]
     Indication: SELF INJURIOUS BEHAVIOUR
     Route: 048
     Dates: start: 20120713, end: 20120713
  2. VALPROATE SODIUM [Suspect]
     Indication: SELF INJURIOUS BEHAVIOUR
     Route: 048
     Dates: start: 20120713, end: 20120713
  3. HALDOL [Suspect]
     Indication: PRODUCT USED FOR UNKNOWN INDICATION
     Route: 048
     Dates: start: 20120713, end: 20120713
  4. OLANZAPINE [Suspect]
     Indication: SELF INJURIOUS BEHAVIOUR
     Route: 048
     Dates: start: 20120713, end: 20120713
  5. ANAFRANIL [Suspect]
     Indication: SELF INJURIOUS BEHAVIOUR
     Route: 048
     Dates: start: 20120713, end: 20120713
  6. TRAZODONE HCL [Suspect]
     Indication: SELF INJURIOUS BEHAVIOUR
     Route: 048
     Dates: start: 20120713, end: 20120713
  7. CLONAZEPAM [Suspect]
     Indication: SELF INJURIOUS BEHAVIOUR
     Route: 048
     Dates: start: 20120713, end: 20120713

REACTIONS (4)
  - SELF INJURIOUS BEHAVIOUR [None]
  - HYPOTENSION [None]
  - SOPOR [None]
  - MULTIPLE DRUG OVERDOSE [None]
